FAERS Safety Report 5472694-3 (Version None)
Quarter: 2007Q4

REPORT INFORMATION
  Report Type: 
  Country: None (occurrence: None)
  Receive Date: 20071001
  Receipt Date: 20061002
  Transmission Date: 20080405
  Serious: No
  Sender: FDA-Public Use
  Company Number: US-ASTRAZENECA-2006UW19031

PATIENT
  Age: 60 Year
  Sex: Female

DRUGS (2)
  1. ARIMIDEX [Suspect]
     Indication: BREAST CANCER
     Route: 048
     Dates: start: 20060105
  2. LEVAQUIN [Concomitant]

REACTIONS (6)
  - DERMATITIS [None]
  - HAIR TEXTURE ABNORMAL [None]
  - HOT FLUSH [None]
  - INCISIONAL DRAINAGE [None]
  - RASH [None]
  - SKIN ODOUR ABNORMAL [None]
